FAERS Safety Report 19516494 (Version 1)
Quarter: 2021Q3

REPORT INFORMATION
  Report Type: Spontaneous
  Country: US (occurrence: US)
  Receive Date: 20210709
  Receipt Date: 20210709
  Transmission Date: 20211014
  Serious: No
  Sender: FDA-Public Use
  Company Number: US-ASTELLAS-2021US004209

PATIENT
  Age: 87 Year
  Sex: Female

DRUGS (1)
  1. MYRBETRIQ [Suspect]
     Active Substance: MIRABEGRON
     Indication: PRODUCT USED FOR UNKNOWN INDICATION
     Route: 065
     Dates: start: 20210130

REACTIONS (5)
  - Back pain [Unknown]
  - Dry mouth [Unknown]
  - Cystitis [Unknown]
  - Urinary tract infection [Unknown]
  - Blood pressure increased [Recovering/Resolving]

NARRATIVE: CASE EVENT DATE: 20210131
